FAERS Safety Report 4889569-0 (Version None)
Quarter: 2006Q1

REPORT INFORMATION
  Report Type: 
  Country: None (occurrence: None)
  Receive Date: 20060120
  Receipt Date: 20060105
  Transmission Date: 20060701
  Serious: Yes (Other)
  Sender: FDA-Public Use
  Company Number: 2006S1000242

PATIENT
  Age: 34 Year
  Sex: Male

DRUGS (8)
  1. EXTENDED PHENYTOIN SODIUM [Suspect]
     Indication: CONVULSION
     Dosage: SEE IMAGE
     Route: 048
     Dates: start: 20040801, end: 20051219
  2. EXTENDED PHENYTOIN SODIUM [Suspect]
     Indication: CONVULSION
     Dosage: SEE IMAGE
     Route: 048
     Dates: start: 20040801, end: 20051219
  3. PREDNISONE [Concomitant]
  4. LEVOTHYROXINE SODIUM [Concomitant]
  5. TESTOSTERONE CIPIONATE [Concomitant]
  6. PSEUDOEPHEDRINE HYDROCHLORIDE [Concomitant]
  7. ETHANOL/PARACETAMOL/DEXTROMETHORPHAN [Concomitant]
  8. HYDROBROMIDE/EPHEDRINE SULFATE/DOXYLAMINE SUCCINATE [Concomitant]

REACTIONS (2)
  - DRUG LEVEL DECREASED [None]
  - GRAND MAL CONVULSION [None]
